FAERS Safety Report 16410008 (Version 2)
Quarter: 2021Q1

REPORT INFORMATION
  Report Type: Report from Study
  Country: IL (occurrence: IL)
  Receive Date: 20190610
  Receipt Date: 20210129
  Transmission Date: 20210419
  Serious: Yes (Hospitalization)
  Sender: FDA-Public Use
  Company Number: IL-JNJFOC-20190319341

PATIENT
  Age: 31 Year
  Sex: Male

DRUGS (1)
  1. SIMPONI [Suspect]
     Active Substance: GOLIMUMAB
     Indication: ANKYLOSING SPONDYLITIS
     Route: 058
     Dates: start: 20190207

REACTIONS (4)
  - Herpes virus infection [Recovered/Resolved]
  - Tendon pain [Not Recovered/Not Resolved]
  - Peritonsillar abscess [Recovering/Resolving]
  - Pharyngitis streptococcal [Recovering/Resolving]

NARRATIVE: CASE EVENT DATE: 2019
